FAERS Safety Report 10192371 (Version 2)
Quarter: 2014Q2

REPORT INFORMATION
  Report Type: Report from Study
  Country: US (occurrence: US)
  Receive Date: 20140523
  Receipt Date: 20140523
  Transmission Date: 20141212
  Serious: Yes (Hospitalization, Other)
  Sender: FDA-Public Use
  Company Number: US-ABBVIE-14P-163-1222663-00

PATIENT
  Age: 30 Year
  Sex: Female

DRUGS (7)
  1. HUMIRA [Suspect]
     Indication: CROHN^S DISEASE
     Dates: start: 20140308
  2. HUMIRA [Suspect]
  3. HUMIRA [Suspect]
     Dates: start: 20140417
  4. TRAMADOL [Concomitant]
     Indication: PAIN
  5. NORCO [Concomitant]
     Indication: PAIN
  6. BACLOFEN [Concomitant]
     Indication: MUSCLE SPASMS
  7. PROMETHAZINE [Concomitant]
     Indication: NAUSEA

REACTIONS (10)
  - Gastrointestinal inflammation [Recovering/Resolving]
  - Abdominal pain [Recovering/Resolving]
  - Fatigue [Unknown]
  - Epistaxis [Unknown]
  - Cold sweat [Unknown]
  - Migraine [Unknown]
  - Cystitis [Recovered/Resolved]
  - Arthralgia [Unknown]
  - Pyrexia [Unknown]
  - Appendicitis [Unknown]
